FAERS Safety Report 5665129-9 (Version None)
Quarter: 2008Q1

REPORT INFORMATION
  Report Type: 
  Country: None (occurrence: None)
  Receive Date: 20080314
  Receipt Date: 20080312
  Transmission Date: 20080703
  Serious: Yes (Life-Threatening)
  Sender: FDA-Public Use
  Company Number: AT-MERCK-0803AUT00005

PATIENT
  Age: 92 Year
  Sex: Female

DRUGS (2)
  1. MODURETIC 5-50 [Suspect]
     Indication: HYPERTENSION
     Route: 048
     Dates: end: 20080225
  2. HYZAAR [Concomitant]
     Indication: HYPERTENSION
     Route: 048

REACTIONS (2)
  - BLOOD ELECTROLYTES DECREASED [None]
  - SYNCOPE [None]
